FAERS Safety Report 11541453 (Version 1)
Quarter: 2015Q3

REPORT INFORMATION
  Report Type: Spontaneous
  Country: US (occurrence: US)
  Receive Date: 20150923
  Receipt Date: 20150923
  Transmission Date: 20151125
  Serious: No
  Sender: FDA-Public Use
  Company Number: US-KOWA-15US000405

PATIENT
  Age: 60 Year
  Sex: Female

DRUGS (1)
  1. LIVALO [Suspect]
     Active Substance: PITAVASTATIN CALCIUM
     Indication: PROPHYLAXIS
     Dosage: 2 MG, QD
     Route: 048
     Dates: start: 201505, end: 20150512

REACTIONS (4)
  - Pharyngitis [Not Recovered/Not Resolved]
  - Odynophagia [Not Recovered/Not Resolved]
  - Diarrhoea [Not Recovered/Not Resolved]
  - Lymphadenopathy [Not Recovered/Not Resolved]

NARRATIVE: CASE EVENT DATE: 201505
